FAERS Safety Report 9741351 (Version 1)
Quarter: 2013Q4

REPORT INFORMATION
  Report Type: Report from Study
  Country: US (occurrence: US)
  Receive Date: 20131209
  Receipt Date: 20131209
  Transmission Date: 20140711
  Serious: Yes (Life-Threatening)
  Sender: FDA-Public Use
  Company Number: PHEH2013US025246

PATIENT
  Sex: Male

DRUGS (1)
  1. DIOVAN [Suspect]
     Dosage: UNK UKN, UNK (CUTTING THE PILL IN HALF)

REACTIONS (3)
  - Drug dependence [Unknown]
  - Feeling abnormal [Unknown]
  - Wrong technique in drug usage process [Unknown]
